FAERS Safety Report 9719175 (Version 2)
Quarter: 2013Q4

REPORT INFORMATION
  Report Type: Spontaneous
  Country: IT (occurrence: IT)
  Receive Date: 20131127
  Receipt Date: 20131127
  Transmission Date: 20140711
  Serious: Yes (Hospitalization)
  Sender: FDA-Public Use
  Company Number: CHNY2013IT002508

PATIENT
  Age: 85 Year
  Sex: Female

DRUGS (7)
  1. IBUPROFEN [Suspect]
     Indication: ARTHRALGIA
     Dosage: 200 MG, QD
     Route: 048
     Dates: start: 20130401, end: 20130516
  2. COUMADIN//WARFARIN SODIUM [Suspect]
     Indication: AORTIC VALVE DISEASE
     Dosage: 3.75 MG, QD
     Route: 048
     Dates: start: 20130516
  3. LANOXIN [Concomitant]
     Dosage: UNK, UNK
  4. GLUCOPHAGE [Concomitant]
     Dosage: UNK, UNK
  5. LASIX [Concomitant]
     Dosage: UNK, UNK
  6. QUARK [Concomitant]
     Dosage: UNK, UNK
  7. SIMVASTATIN [Concomitant]
     Dosage: UNK, UNK

REACTIONS (1)
  - Haemorrhage [Recovered/Resolved]
